FAERS Safety Report 6886987-6 (Version None)
Quarter: 2010Q3

REPORT INFORMATION
  Report Type: 
  Country: None (occurrence: None)
  Receive Date: 20100730
  Receipt Date: 20100721
  Transmission Date: 20110219
  Serious: Yes (Hospitalization)
  Sender: FDA-Public Use
  Company Number: US-JNJFOC-20100707714

PATIENT
  Sex: Female

DRUGS (10)
  1. SANDOZ FENTANYL TRANSDERMAL SYSTEM [Suspect]
     Indication: ARTHROPATHY
     Route: 062
  2. SANDOZ FENTANYL TRANSDERMAL SYSTEM [Suspect]
     Indication: MUSCULOSKELETAL DISCOMFORT
     Route: 062
  3. UNSPECIFIED FENTANYL TRANSERMAL SYSTEM [Suspect]
     Indication: ARTHROPATHY
     Route: 062
  4. UNSPECIFIED FENTANYL TRANSERMAL SYSTEM [Suspect]
     Route: 062
  5. UNSPECIFIED FENTANYL TRANSERMAL SYSTEM [Suspect]
     Indication: MUSCULOSKELETAL DISCOMFORT
     Route: 062
  6. UNSPECIFIED FENTANYL TRANSERMAL SYSTEM [Suspect]
     Route: 062
  7. SANDOZ FENTANYL TRANSDERMAL SYSTEM [Suspect]
     Indication: PRODUCT USED FOR UNKNOWN INDICATION
     Dosage: NDC#: 0781-7241-55
     Route: 062
  8. FENTANYL-100 [Suspect]
     Indication: ARTHROPATHY
     Route: 062
  9. FENTANYL-100 [Suspect]
     Indication: MUSCULOSKELETAL DISCOMFORT
     Route: 062
  10. STATINS [Concomitant]
     Indication: BLOOD CHOLESTEROL
     Route: 065

REACTIONS (5)
  - APPLICATION SITE ERYTHEMA [None]
  - DRUG ADMINISTERED AT INAPPROPRIATE SITE [None]
  - INADEQUATE ANALGESIA [None]
  - INTESTINAL OBSTRUCTION [None]
  - WRONG TECHNIQUE IN DRUG USAGE PROCESS [None]
